FAERS Safety Report 9482293 (Version 1)
Quarter: 2013Q3

REPORT INFORMATION
  Report Type: Report from Study
  Country: BR (occurrence: BR)
  Receive Date: 20130828
  Receipt Date: 20130828
  Transmission Date: 20140515
  Serious: Yes (Hospitalization, Disabling, Other)
  Sender: FDA-Public Use
  Company Number: BR-ROCHE-1266559

PATIENT
  Sex: Female
  Weight: 77.51 kg

DRUGS (3)
  1. XOLAIR [Suspect]
     Indication: ASTHMA
     Route: 065
  2. CAPTOPRIL [Concomitant]
  3. NIFEDIPINE [Concomitant]

REACTIONS (13)
  - Spinal pain [Unknown]
  - Abdominal pain [Unknown]
  - Breast pain [Unknown]
  - Apparent death [Unknown]
  - Paraplegia [Unknown]
  - Movement disorder [Unknown]
  - Renal disorder [Unknown]
  - Blood cholesterol increased [Unknown]
  - Renal pain [Unknown]
  - Insomnia [Unknown]
  - Pain [Unknown]
  - Dyspnoea [Unknown]
  - Visual impairment [Unknown]
